FAERS Safety Report 7705222-X (Version None)
Quarter: 2011Q3

REPORT INFORMATION
  Report Type: 
  Country: None (occurrence: None)
  Receive Date: 20110818
  Receipt Date: 20110812
  Transmission Date: 20111222
  Serious: Yes (Hospitalization, Other)
  Sender: FDA-Public Use
  Company Number: LIP 11011

PATIENT
  Age: 64 Year
  Sex: Female
  Weight: 49.8 kg

DRUGS (1)
  1. LIPOFEN [Suspect]
     Indication: BLOOD CHOLESTEROL INCREASED
     Dates: start: 20110501, end: 20110726

REACTIONS (2)
  - ACUTE PROMYELOCYTIC LEUKAEMIA [None]
  - PANCYTOPENIA [None]
